FAERS Safety Report 4956612-X (Version None)
Quarter: 2006Q1

REPORT INFORMATION
  Report Type: 
  Country: None (occurrence: None)
  Receive Date: 20060329
  Receipt Date: 20051222
  Transmission Date: 20060701
  Serious: Yes (Disabling, Other)
  Sender: FDA-Public Use
  Company Number: PHBS2005CA19024

PATIENT
  Age: 68 Year
  Sex: Female

DRUGS (1)
  1. PAMIDRONATE DISODIUM [Suspect]
     Indication: MULTIPLE MYELOMA
     Dosage: 90 MG, QMO
     Route: 042

REACTIONS (2)
  - OSTEONECROSIS [None]
  - TOOTH EXTRACTION [None]
